FAERS Safety Report 7559174-6 (Version None)
Quarter: 2011Q2

REPORT INFORMATION
  Report Type: 
  Country: None (occurrence: None)
  Receive Date: 20110621
  Receipt Date: 20110616
  Transmission Date: 20111010
  Serious: Yes (Hospitalization, Other)
  Sender: FDA-Public Use
  Company Number: CO-PFIZER INC-2011134797

PATIENT
  Age: 44 Year
  Sex: Male

DRUGS (2)
  1. RAPAMUNE [Suspect]
     Indication: PROPHYLAXIS AGAINST TRANSPLANT REJECTION
     Dosage: 3 MG, 1X/DAY
     Route: 048
     Dates: start: 20101022
  2. MYCOPHENOLATE MOFETIL [Concomitant]

REACTIONS (4)
  - BLOOD CREATININE INCREASED [None]
  - WEIGHT DECREASED [None]
  - VOMITING [None]
  - DIARRHOEA [None]
